FAERS Safety Report 17826742 (Version 1)
Quarter: 2020Q2

REPORT INFORMATION
  Report Type: Spontaneous
  Country: US (occurrence: US)
  Receive Date: 20200527
  Receipt Date: 20200527
  Transmission Date: 20200714
  Serious: No
  Sender: FDA-Public Use
  Company Number: US-CIPLA LTD.-2020US01129

PATIENT

DRUGS (2)
  1. DICLOFENAC [Suspect]
     Active Substance: DICLOFENAC
     Dosage: UNK, ONE MORE SMALL DOT, QD
     Route: 061
  2. DICLOFENAC [Suspect]
     Active Substance: DICLOFENAC
     Indication: ARTHRITIS
     Dosage: UNK, 2 SMALL DOTS OF GEL TWICE TO 2 KNUCKLES, QD
     Route: 061
     Dates: start: 202001

REACTIONS (6)
  - Product label issue [Unknown]
  - Headache [Unknown]
  - Nausea [Unknown]
  - Product odour abnormal [Unknown]
  - Drug ineffective [Unknown]
  - Product substitution issue [Unknown]
